FAERS Safety Report 4465100-9 (Version None)
Quarter: 2004Q4

REPORT INFORMATION
  Report Type: 
  Country: None (occurrence: None)
  Receive Date: 20041004
  Receipt Date: 20040922
  Transmission Date: 20050328
  Serious: Yes (Hospitalization)
  Sender: FDA-Public Use
  Company Number: 200413529FR

PATIENT
  Age: 83 Year
  Sex: Male

DRUGS (4)
  1. LASILIX [Suspect]
     Indication: CARDIAC FAILURE
     Dosage: DOSE UNIT: UNITS
     Route: 048
     Dates: end: 20040729
  2. ATHYMIL [Concomitant]
     Dosage: DOSE UNIT: UNITS
     Route: 048
  3. PARIET [Concomitant]
     Dosage: DOSE UNIT: UNITS
     Route: 048
     Dates: end: 20040729
  4. VAGOSTABYL [Concomitant]
     Dosage: DOSE UNIT: UNITS
     Route: 048
     Dates: end: 20040729

REACTIONS (2)
  - CONFUSIONAL STATE [None]
  - HYPONATRAEMIA [None]
